FAERS Safety Report 24323230 (Version 1)
Quarter: 2024Q3

REPORT INFORMATION
  Report Type: Spontaneous
  Country: CN (occurrence: CN)
  Receive Date: 20240916
  Receipt Date: 20240916
  Transmission Date: 20241017
  Serious: Yes (Life-Threatening, Hospitalization)
  Sender: BAYER
  Company Number: CN-BAYER-2024A131440

PATIENT
  Age: 30 Year
  Sex: Female

DRUGS (2)
  1. GADOBUTROL [Suspect]
     Active Substance: GADOBUTROL
     Indication: Imaging procedure
     Dosage: 6 ML, ONCE, INJECTION
     Route: 050
     Dates: start: 20240909, end: 20240909
  2. GADOBUTROL [Suspect]
     Active Substance: GADOBUTROL
     Indication: Pharyngeal disorder

REACTIONS (2)
  - Anaphylactic shock [None]
  - Blood pressure immeasurable [None]

NARRATIVE: CASE EVENT DATE: 20240909
